FAERS Safety Report 16944721 (Version 1)
Quarter: 2019Q4

REPORT INFORMATION
  Report Type: Spontaneous
  Country: US (occurrence: US)
  Receive Date: 20191022
  Receipt Date: 20191022
  Transmission Date: 20200122
  Serious: Yes (Other)
  Sender: FDA-Public Use
  Company Number: US-PFIZER INC-2019452059

PATIENT
  Age: 43 Year
  Sex: Male

DRUGS (6)
  1. CIALIS [Suspect]
     Active Substance: TADALAFIL
     Indication: ERECTILE DYSFUNCTION
     Dosage: 10 MG, ONCE EVERY TWO MONTHS
     Route: 048
     Dates: start: 20060403, end: 20160712
  2. CIALIS [Suspect]
     Active Substance: TADALAFIL
     Dosage: 23 MG, 2-3 TIMES WEEKLY
     Dates: start: 20060403, end: 20160712
  3. VIAGRA [Suspect]
     Active Substance: SILDENAFIL CITRATE
     Indication: ERECTILE DYSFUNCTION
     Dosage: 100 MG, ONCE EVERY TWO MONTHS
     Route: 048
     Dates: start: 20110325, end: 20160113
  4. XANAX [Concomitant]
     Active Substance: ALPRAZOLAM
     Indication: TENSION HEADACHE
     Dosage: UNK
     Dates: start: 2010, end: 2015
  5. IBUPROFEN. [Concomitant]
     Active Substance: IBUPROFEN
     Indication: PAIN
     Dosage: UNK
     Dates: start: 2010, end: 2016
  6. TYLENOL [Concomitant]
     Active Substance: ACETAMINOPHEN
     Indication: PAIN
     Dosage: UNK
     Dates: start: 1996

REACTIONS (1)
  - Malignant melanoma [Unknown]

NARRATIVE: CASE EVENT DATE: 20090911
